FAERS Safety Report 13755443 (Version 2)
Quarter: 2017Q3

REPORT INFORMATION
  Report Type: Spontaneous
  Country: US (occurrence: US)
  Receive Date: 20170714
  Receipt Date: 20170821
  Transmission Date: 20171127
  Serious: Yes (Death, Hospitalization)
  Sender: FDA-Public Use
  Company Number: US-INCYTE CORPORATION-2017IN005574

PATIENT

DRUGS (18)
  1. JAKAFI [Suspect]
     Active Substance: RUXOLITINIB
     Indication: MYELOFIBROSIS
     Dosage: 10 MG, BID
     Route: 048
     Dates: start: 201704
  2. CARVEDILOL. [Concomitant]
     Active Substance: CARVEDILOL
     Indication: ROUTINE HEALTH MAINTENANCE
     Dosage: 6.25 MG, BID, WITH MEALS
     Route: 048
  3. LOSARTAN. [Concomitant]
     Active Substance: LOSARTAN
     Indication: ROUTINE HEALTH MAINTENANCE
     Dosage: 25 MG, QD
     Route: 048
  4. OXYCONTIN [Concomitant]
     Active Substance: OXYCODONE HYDROCHLORIDE
     Indication: HOSPICE CARE
     Dosage: 10 MG, Q12H
     Route: 048
  5. ALLOPURINOL. [Concomitant]
     Active Substance: ALLOPURINOL
     Indication: ROUTINE HEALTH MAINTENANCE
     Dosage: 300 MG, QD
     Route: 048
  6. ATORVASTATIN [Concomitant]
     Active Substance: ATORVASTATIN
     Indication: ROUTINE HEALTH MAINTENANCE
     Dosage: 20 MG, QD, AT BEDTIME
     Route: 048
  7. HYDREA [Concomitant]
     Active Substance: HYDROXYUREA
     Indication: ROUTINE HEALTH MAINTENANCE
     Dosage: 500 MG, QD, ONE WEEK ONLY
     Route: 048
  8. ASPIRIN                            /00002701/ [Concomitant]
     Active Substance: ASPIRIN
     Indication: ROUTINE HEALTH MAINTENANCE
     Dosage: 81 MG, QD
     Route: 048
  9. OXYCODONE [Concomitant]
     Active Substance: OXYCODONE
     Indication: PAIN
     Dosage: 10 MG, EVERY 6 HR, PRN SEVERE PAIN
     Route: 048
  10. ALBUTEROL                          /00139501/ [Concomitant]
     Active Substance: ALBUTEROL
     Indication: WHEEZING
     Dosage: 1 PUFF EVERY 4 HR, PRN
     Route: 055
  11. LASIX [Concomitant]
     Active Substance: FUROSEMIDE
     Indication: ROUTINE HEALTH MAINTENANCE
     Dosage: 40 MG, QD
     Route: 048
  12. ALBUTEROL                          /00139501/ [Concomitant]
     Active Substance: ALBUTEROL
     Indication: ROUTINE HEALTH MAINTENANCE
  13. ACETAMINOPHEN. [Concomitant]
     Active Substance: ACETAMINOPHEN
     Indication: PAIN
  14. OXYCODONE [Concomitant]
     Active Substance: OXYCODONE
     Dosage: 5 MG, EVERY 6 HR, PRN MODERATE PAIN
     Route: 048
  15. ACETAMINOPHEN. [Concomitant]
     Active Substance: ACETAMINOPHEN
     Indication: PYREXIA
     Dosage: 650 MG, EVERY 4 HR, PRN
     Route: 048
  16. CALCIUM CARBONATE W/CALCIUM LACTATE/COLECALCI [Concomitant]
     Indication: ROUTINE HEALTH MAINTENANCE
     Dosage: 200 MG-250 IU, 1 TABLET, DAILY
     Route: 048
  17. JAKAFI [Suspect]
     Active Substance: RUXOLITINIB
     Dosage: 10 MG, BID
     Route: 048
     Dates: start: 20170606
  18. PROTONIX                           /00661201/ [Concomitant]
     Active Substance: OMEPRAZOLE
     Indication: ROUTINE HEALTH MAINTENANCE
     Dosage: 40 MG, BID
     Route: 048

REACTIONS (8)
  - Respiratory failure [Not Recovered/Not Resolved]
  - White blood cell count decreased [Not Recovered/Not Resolved]
  - Haemoglobin decreased [Not Recovered/Not Resolved]
  - Cardiomyopathy [Fatal]
  - General physical health deterioration [Not Recovered/Not Resolved]
  - Haematocrit decreased [Not Recovered/Not Resolved]
  - Cardiac failure congestive [Not Recovered/Not Resolved]
  - Platelet count decreased [Not Recovered/Not Resolved]

NARRATIVE: CASE EVENT DATE: 20170601
